FAERS Safety Report 12582663 (Version 2)
Quarter: 2016Q3

REPORT INFORMATION
  Report Type: Report from Study
  Country: US (occurrence: US)
  Receive Date: 20160722
  Receipt Date: 20160802
  Transmission Date: 20161109
  Serious: Yes (Hospitalization)
  Sender: FDA-Public Use
  Company Number: US-TAIHO ONCOLOGY INC-EU-2016-01679

PATIENT
  Age: 68 Year
  Sex: Female

DRUGS (20)
  1. ALPRAZOLAM. [Concomitant]
     Active Substance: ALPRAZOLAM
     Dosage: NI
  2. ZOFRAN [Concomitant]
     Active Substance: ONDANSETRON HYDROCHLORIDE
     Dosage: NI
  3. FLOMAX [Concomitant]
     Active Substance: TAMSULOSIN HYDROCHLORIDE
     Dosage: NI
  4. BENTYL [Concomitant]
     Active Substance: DICYCLOMINE HYDROCHLORIDE
     Dosage: NI
  5. ZOCOR [Concomitant]
     Active Substance: SIMVASTATIN
     Dosage: NI
  6. AMOXICILLIN. [Concomitant]
     Active Substance: AMOXICILLIN
     Dosage: NI
  7. ZOLOFT [Concomitant]
     Active Substance: SERTRALINE HYDROCHLORIDE
     Dosage: NI
  8. GABAPENTIN. [Concomitant]
     Active Substance: GABAPENTIN
     Dosage: NI
  9. MERREM [Concomitant]
     Active Substance: MEROPENEM
     Dosage: NI
  10. PYRIDIUM [Concomitant]
     Active Substance: PHENAZOPYRIDINE
     Dosage: NI
  11. CENTRUM [Concomitant]
     Active Substance: VITAMINS
     Dosage: NI
  12. LOMOTIL [Concomitant]
     Active Substance: ATROPINE SULFATE\DIPHENOXYLATE HYDROCHLORIDE
     Dosage: NI
  13. DETROL [Concomitant]
     Active Substance: TOLTERODINE TARTRATE
     Dosage: NI
  14. LONSURF [Suspect]
     Active Substance: TIPIRACIL HYDROCHLORIDE\TRIFLURIDINE
     Indication: COLON CANCER
     Route: 048
     Dates: start: 201605
  15. MARINOL [Concomitant]
     Active Substance: DRONABINOL
     Dosage: NI
  16. COMPAZINE [Concomitant]
     Active Substance: PROCHLORPERAZINE MALEATE
     Dosage: NI
  17. LEVOTHYROXINE. [Concomitant]
     Active Substance: LEVOTHYROXINE
     Dosage: NI
  18. METRONIDAZOLE. [Concomitant]
     Active Substance: METRONIDAZOLE
     Dosage: NI
  19. PARACETAMOL/OXYCODONE HYDROCHLORIDE [Concomitant]
     Dosage: NI
  20. POTASSIUM CHLORIDE. [Concomitant]
     Active Substance: POTASSIUM CHLORIDE
     Dosage: NI

REACTIONS (2)
  - Urinary tract infection [Unknown]
  - Septic shock [Unknown]

NARRATIVE: CASE EVENT DATE: 20160623
